FAERS Safety Report 14757726 (Version 1)
Quarter: 2018Q2

REPORT INFORMATION
  Report Type: Spontaneous
  Country: US (occurrence: US)
  Receive Date: 20180409
  Receipt Date: 20180409
  Transmission Date: 20180711
  Serious: Yes (Other)
  Sender: FDA-Public Use
  Company Number: None

PATIENT
  Age: 10 Year
  Sex: Male
  Weight: 30.6 kg

DRUGS (2)
  1. DEXMETHYLPHENIDATE XR 20MG IMPAX MANUFACTURER [Concomitant]
     Dates: start: 20170831, end: 20171205
  2. DEXMETHYLPHENIDATE [Suspect]
     Active Substance: DEXMETHYLPHENIDATE HYDROCHLORIDE
     Indication: ATTENTION DEFICIT/HYPERACTIVITY DISORDER
     Route: 048
     Dates: start: 20170831, end: 20171205

REACTIONS (6)
  - Tic [None]
  - Eating disorder [None]
  - Weight decreased [None]
  - Product substitution issue [None]
  - Sleep disorder [None]
  - Aggression [None]

NARRATIVE: CASE EVENT DATE: 20170831
